FAERS Safety Report 21450397 (Version 1)
Quarter: 2022Q4

REPORT INFORMATION
  Report Type: Spontaneous
  Country: EG (occurrence: None)
  Receive Date: 20221013
  Receipt Date: 20221013
  Transmission Date: 20230113
  Serious: Yes (Other)
  Sender: FDA-Public Use
  Company Number: EG-Hikma Pharmaceuticals-EG-H14001-22-02585

PATIENT
  Age: 57 Year
  Sex: Female
  Weight: 105 kg

DRUGS (2)
  1. PACLITAXEL [Suspect]
     Active Substance: PACLITAXEL
     Indication: Breast cancer
     Route: 041
     Dates: start: 20211125
  2. HERCEPTIN [Concomitant]
     Active Substance: TRASTUZUMAB
     Indication: Breast cancer
     Route: 058
     Dates: start: 20211125

REACTIONS (6)
  - Cough [Recovering/Resolving]
  - Productive cough [Recovering/Resolving]
  - Joint swelling [Recovering/Resolving]
  - Epistaxis [Recovering/Resolving]
  - Hepatic enzyme increased [Recovering/Resolving]
  - Dyspnoea [Recovering/Resolving]
